FAERS Safety Report 9183222 (Version 1)
Quarter: 2013Q1

REPORT INFORMATION
  Report Type: Spontaneous
  Country: US (occurrence: US)
  Receive Date: 20130322
  Receipt Date: 20130322
  Transmission Date: 20140127
  Serious: No
  Sender: FDA-Public Use
  Company Number: US-BRISTOL-MYERS SQUIBB COMPANY-16928756

PATIENT
  Age: 60 Year
  Sex: Female
  Weight: 68.03 kg

DRUGS (1)
  1. ERBITUX [Suspect]
     Indication: LARYNGEAL CANCER
     Dosage: RECEIVED 2 WEEKLY TREATMENTS

REACTIONS (6)
  - Acne [Unknown]
  - Flatulence [Unknown]
  - Diarrhoea [Unknown]
  - Chapped lips [Unknown]
  - Lip dry [Unknown]
  - Dry mouth [Unknown]
